FAERS Safety Report 7501806-2 (Version None)
Quarter: 2011Q2

REPORT INFORMATION
  Report Type: 
  Country: None (occurrence: None)
  Receive Date: 20110525
  Receipt Date: 20101015
  Transmission Date: 20111010
  Serious: Yes (Hospitalization)
  Sender: FDA-Public Use
  Company Number: US-BAYER-201021647NA

PATIENT
  Age: 31 Year
  Sex: Female
  Weight: 74.83 kg

DRUGS (7)
  1. IBUPROFEN (ADVIL) [Concomitant]
     Dosage: UNK UNK, PRN
  2. ACYCLOVIR [Concomitant]
     Indication: DERMATITIS CONTACT
     Dosage: UNK
     Dates: start: 20040101
  3. NITROFURANTOIN [Concomitant]
  4. HYDROCODONE [HYDROCODONE] [Concomitant]
  5. YAZ [Suspect]
     Indication: CONTRACEPTION
     Dosage: AS USED DOSE: UNK
     Route: 048
     Dates: start: 20071201, end: 20090601
  6. ALEVE [Concomitant]
     Dosage: UNK UNK, PRN
  7. SULFAMETHOXAZOLE [Concomitant]

REACTIONS (4)
  - CHOLELITHIASIS [None]
  - CHOLECYSTECTOMY [None]
  - CHOLECYSTITIS [None]
  - INGUINAL HERNIA [None]
